FAERS Safety Report 5988809-4 (Version None)
Quarter: 2008Q4

REPORT INFORMATION
  Report Type: 
  Country: None (occurrence: None)
  Receive Date: 20081208
  Receipt Date: 20081208
  Transmission Date: 20090506
  Serious: Yes (Disabling, Other)
  Sender: FDA-Public Use
  Company Number: None

PATIENT
  Age: 54 Year
  Sex: Male
  Weight: 44.4525 kg

DRUGS (1)
  1. BACTRIM DS [Suspect]
     Indication: INFECTION
     Dosage: 1 TAB BID PO
     Route: 048
     Dates: start: 20081130, end: 20081203

REACTIONS (4)
  - BLISTER [None]
  - SKIN LESION [None]
  - SKIN REACTION [None]
  - STEVENS-JOHNSON SYNDROME [None]
